FAERS Safety Report 6304730-6 (Version None)
Quarter: 2009Q3

REPORT INFORMATION
  Report Type: 
  Country: None (occurrence: None)
  Receive Date: 20090811
  Receipt Date: 20090804
  Transmission Date: 20100115
  Serious: Yes (Death, Hospitalization)
  Sender: FDA-Public Use
  Company Number: A0801190A

PATIENT
  Age: 53 Year
  Sex: Male

DRUGS (1)
  1. AVANDIA [Suspect]
     Indication: DIABETES MELLITUS
     Route: 048
     Dates: start: 20061201, end: 20070507

REACTIONS (2)
  - ARTERIOSCLEROSIS CORONARY ARTERY [None]
  - HYPERTENSIVE HEART DISEASE [None]
